FAERS Safety Report 25881839 (Version 2)
Quarter: 2025Q4

REPORT INFORMATION
  Report Type: Report from Study
  Country: CO (occurrence: CO)
  Receive Date: 20251005
  Receipt Date: 20251231
  Transmission Date: 20260118
  Serious: Yes (Hospitalization, Other)
  Sender: ABBVIE
  Company Number: CO-ABBVIE-6484311

PATIENT
  Age: 52 Year
  Sex: Female

DRUGS (1)
  1. RINVOQ [Suspect]
     Active Substance: UPADACITINIB
     Indication: Rheumatoid arthritis
     Dosage: BOTTLE 15 MILLIGRAM
     Route: 048
     Dates: start: 20230905, end: 20250814

REACTIONS (6)
  - Peritonitis [Not Recovered/Not Resolved]
  - Decubitus ulcer [Unknown]
  - Wound dehiscence [Not Recovered/Not Resolved]
  - Fistula [Unknown]
  - Pyrexia [Unknown]
  - Abdominal pain [Unknown]

NARRATIVE: CASE EVENT DATE: 20250101
